FAERS Safety Report 21555444 (Version 1)
Quarter: 2022Q4

REPORT INFORMATION
  Report Type: Spontaneous
  Country: TW (occurrence: TW)
  Receive Date: 20221104
  Receipt Date: 20221104
  Transmission Date: 20230113
  Serious: Yes (Death, Other)
  Sender: FDA-Public Use
  Company Number: TW-ELI_LILLY_AND_COMPANY-TW202210014910

PATIENT
  Age: 32 Year
  Sex: Male

DRUGS (8)
  1. CYRAMZA [Suspect]
     Active Substance: RAMUCIRUMAB
     Indication: Hepatic cancer
     Dosage: 1000 MG, UNKNOWN
     Route: 042
     Dates: start: 20211022
  2. CYRAMZA [Suspect]
     Active Substance: RAMUCIRUMAB
     Dosage: 1000 MG, UNKNOWN
     Route: 042
     Dates: start: 20211105
  3. CYRAMZA [Suspect]
     Active Substance: RAMUCIRUMAB
     Dosage: 1000 MG, UNKNOWN
     Route: 042
     Dates: start: 20211119
  4. CYRAMZA [Suspect]
     Active Substance: RAMUCIRUMAB
     Dosage: 1000 MG, UNKNOWN
     Route: 042
     Dates: start: 20211203
  5. CYRAMZA [Suspect]
     Active Substance: RAMUCIRUMAB
     Dosage: 1000 MG, UNKNOWN
     Route: 042
     Dates: start: 20211217
  6. CYRAMZA [Suspect]
     Active Substance: RAMUCIRUMAB
     Dosage: 1000 MG, UNKNOWN
     Route: 042
     Dates: start: 20211231
  7. CYRAMZA [Suspect]
     Active Substance: RAMUCIRUMAB
     Dosage: 1000 MG, UNKNOWN
     Route: 042
     Dates: start: 20220211
  8. CYRAMZA [Suspect]
     Active Substance: RAMUCIRUMAB
     Dosage: 1000 MG, UNKNOWN
     Route: 042
     Dates: start: 20220225

REACTIONS (4)
  - Death [Fatal]
  - Jaundice [Unknown]
  - Alpha 1 foetoprotein abnormal [Unknown]
  - Ascites [Unknown]

NARRATIVE: CASE EVENT DATE: 20220507
